FAERS Safety Report 21540136 (Version 2)
Quarter: 2022Q4

REPORT INFORMATION
  Report Type: Spontaneous
  Country: BR (occurrence: None)
  Receive Date: 20221102
  Receipt Date: 20221201
  Transmission Date: 20230112
  Serious: Yes (Hospitalization, Other)
  Sender: FDA-Public Use
  Company Number: BR-ROCHE-3207031

PATIENT
  Age: 82 Year
  Sex: Male

DRUGS (6)
  1. TECENTRIQ [Suspect]
     Active Substance: ATEZOLIZUMAB
     Indication: Hepatocellular carcinoma
     Route: 041
     Dates: start: 20211216
  2. ENTECAVIR [Concomitant]
     Active Substance: ENTECAVIR
     Dosage: 2 TABLETS EVERY OTHER DAY
  3. PROPRANOLOL [Concomitant]
     Active Substance: PROPRANOLOL HYDROCHLORIDE
  4. ROSUVASTATIN [Concomitant]
     Active Substance: ROSUVASTATIN
     Indication: Glaucoma
  5. BEVACIZUMAB [Concomitant]
     Active Substance: BEVACIZUMAB
     Indication: Hepatocellular carcinoma
     Route: 042
     Dates: start: 20211216
  6. SORAFENIB [Concomitant]
     Active Substance: SORAFENIB
     Dates: start: 20220406

REACTIONS (20)
  - Hepatocellular carcinoma [Recovered/Resolved]
  - Portal hypertension [Recovered/Resolved]
  - Liver disorder [Recovered/Resolved]
  - Ascites [Recovered/Resolved]
  - Tumour invasion [Recovered/Resolved]
  - Nausea [Recovered/Resolved]
  - Alpha 1 foetoprotein decreased [Recovered/Resolved]
  - Blood albumin decreased [Recovered/Resolved]
  - Blood bilirubin decreased [Recovered/Resolved]
  - Decreased appetite [Recovered/Resolved]
  - Decreased appetite [Recovered/Resolved]
  - Weight decreased [Recovered/Resolved]
  - Eastern Cooperative Oncology Group performance status worsened [Recovered/Resolved]
  - Oedema peripheral [Recovered/Resolved]
  - Ascites [Recovered/Resolved]
  - Hypoglycaemia [Recovered/Resolved]
  - Liver disorder [Recovered/Resolved]
  - Oedema peripheral [Recovered/Resolved]
  - Oedema peripheral [Recovered/Resolved]
  - Confusional state [Recovered/Resolved]

NARRATIVE: CASE EVENT DATE: 20220311
